FAERS Safety Report 9188128 (Version 2)
Quarter: 2013Q2

REPORT INFORMATION
  Report Type: Spontaneous
  Country: US (occurrence: US)
  Receive Date: 20130325
  Receipt Date: 20130529
  Transmission Date: 20140414
  Serious: Yes (Other)
  Sender: FDA-Public Use
  Company Number: US-PFIZER INC-2013093105

PATIENT
  Age: 55 Year
  Sex: Female
  Weight: 89.82 kg

DRUGS (2)
  1. CHANTIX [Suspect]
     Indication: SMOKING CESSATION THERAPY
     Dosage: 0.5MG AND 1MG STARTING MONTH PACK AS DIRECTED
     Route: 048
     Dates: start: 20090713
  2. CHANTIX [Suspect]
     Dosage: 1 MG, 2X/DAY (CONTINUING PACK)
     Route: 048
     Dates: start: 20090804, end: 20090904

REACTIONS (1)
  - Depression [Unknown]
